FAERS Safety Report 10498243 (Version 1)
Quarter: 2014Q4

REPORT INFORMATION
  Report Type: Spontaneous
  Country: NZ (occurrence: NZ)
  Receive Date: 20141006
  Receipt Date: 20141006
  Transmission Date: 20150528
  Serious: Yes (Life-Threatening, Other)
  Sender: FDA-Public Use
  Company Number: NZ-ROXANE LABORATORIES, INC.-2014-RO-01512RO

PATIENT

DRUGS (2)
  1. AMLODIPINE [Suspect]
     Active Substance: AMLODIPINE BESYLATE
     Indication: PRODUCT USED FOR UNKNOWN INDICATION
     Route: 065
  2. DOTHIEPIN [Suspect]
     Active Substance: DOTHIEPIN\DOTHIEPIN HYDROCHLORIDE
     Indication: PRODUCT USED FOR UNKNOWN INDICATION
     Route: 065

REACTIONS (3)
  - Toxicity to various agents [Unknown]
  - Ventricular tachycardia [Unknown]
  - Circulatory collapse [Unknown]
